FAERS Safety Report 18616823 (Version 1)
Quarter: 2020Q4

REPORT INFORMATION
  Report Type: Spontaneous
  Country: US (occurrence: US)
  Receive Date: 20201215
  Receipt Date: 20201215
  Transmission Date: 20210114
  Serious: No
  Sender: FDA-Public Use
  Company Number: US-AUROBINDO-AUR-APL-2020-053249

PATIENT
  Age: 69 Year
  Sex: Male
  Weight: 69.3 kg

DRUGS (2)
  1. ARMOUR THYROID [Concomitant]
     Active Substance: THYROID, PORCINE
     Indication: PRODUCT USED FOR UNKNOWN INDICATION
     Dosage: UNK
     Route: 065
  2. MIRTAZAPINE TABLETS 7.5 MG [Suspect]
     Active Substance: MIRTAZAPINE
     Indication: ABDOMINAL PAIN
     Dosage: 1 DOSAGE FORM, AT BED TME
     Route: 065
     Dates: start: 20200815, end: 20201014

REACTIONS (2)
  - Product use in unapproved indication [Unknown]
  - Musculoskeletal stiffness [Unknown]
